APPROVED DRUG PRODUCT: QUIOFIC
Active Ingredient: FOLIC ACID
Strength: 0.2MG/ML
Dosage Form/Route: SOLUTION;ORAL
Application: N216395 | Product #001
Applicant: CMP DEVELOPMENT LLC
Approved: Jan 26, 2026 | RLD: Yes | RS: Yes | Type: RX